FAERS Safety Report 17716311 (Version 1)
Quarter: 2020Q2

REPORT INFORMATION
  Report Type: Spontaneous
  Country: US (occurrence: US)
  Receive Date: 20200428
  Receipt Date: 20200428
  Transmission Date: 20200714
  Serious: No
  Sender: FDA-Public Use
  Company Number: US-SENTYNL THERAPEUTICS, INC.  -2083240

PATIENT
  Age: 27 Year
  Sex: Male
  Weight: 127.27 kg

DRUGS (1)
  1. LEVORPHANOL TARTRATE. [Suspect]
     Active Substance: LEVORPHANOL TARTRATE
     Indication: PAIN
     Route: 048
     Dates: start: 201906

REACTIONS (2)
  - Product availability issue [Not Recovered/Not Resolved]
  - Product dose omission [Not Recovered/Not Resolved]
